FAERS Safety Report 24339190 (Version 1)
Quarter: 2024Q3

REPORT INFORMATION
  Report Type: Spontaneous
  Country: CA (occurrence: US)
  Receive Date: 20240919
  Receipt Date: 20240919
  Transmission Date: 20241016
  Serious: No
  Sender: MYLAN
  Company Number: CA-MYLANLABS-2024M1079165

PATIENT
  Age: 40 Year
  Sex: Female
  Weight: 46.72 kg

DRUGS (1)
  1. TYRVAYA [Suspect]
     Active Substance: VARENICLINE TARTRATE
     Indication: Dry eye
     Dosage: UNK, BID (TWICE A DAY DURING MORNING AND NIGHT)
     Route: 065
     Dates: start: 20240724

REACTIONS (1)
  - Blepharospasm [Not Recovered/Not Resolved]

NARRATIVE: CASE EVENT DATE: 20240820
